FAERS Safety Report 7207908-2 (Version None)
Quarter: 2010Q4

REPORT INFORMATION
  Report Type: 
  Country: None (occurrence: None)
  Receive Date: 20101221
  Receipt Date: 20101206
  Transmission Date: 20110411
  Serious: Yes (Hospitalization)
  Sender: FDA-Public Use
  Company Number: JPI-P-013155

PATIENT
  Age: 28 Year
  Sex: Female
  Weight: 43.9989 kg

DRUGS (2)
  1. XYREM [Suspect]
     Indication: NARCOLEPSY
     Dosage: ORAL; 6 GM (3 GM, 2 IN 1 D), ORAL
     Route: 048
     Dates: end: 20101009
  2. XYREM [Suspect]
     Indication: NARCOLEPSY
     Dosage: ORAL; 6 GM (3 GM, 2 IN 1 D), ORAL
     Route: 048
     Dates: start: 20060501

REACTIONS (3)
  - HAEMORRHAGE URINARY TRACT [None]
  - NEPHROLITHIASIS [None]
  - PAIN [None]
